FAERS Safety Report 7711878-8 (Version None)
Quarter: 2011Q3

REPORT INFORMATION
  Report Type: 
  Country: None (occurrence: None)
  Receive Date: 20110826
  Receipt Date: 20110822
  Transmission Date: 20111222
  Serious: Yes (Life-Threatening, Hospitalization)
  Sender: FDA-Public Use
  Company Number: AT-BAYER-2011-000496

PATIENT
  Age: 69 Year
  Sex: Male
  Weight: 106 kg

DRUGS (22)
  1. FORMOTEROL FUMARATE [Concomitant]
     Indication: CHRONIC OBSTRUCTIVE PULMONARY DISEASE
     Dosage: 1 PUFF(S), BID
     Dates: start: 20080101
  2. ZOLPIDEM TARTRATE [Concomitant]
     Indication: SLEEP DISORDER
     Dosage: 5 MG, QD
     Dates: start: 20101206, end: 20101212
  3. RIFAXIMIN [Concomitant]
     Dosage: 200MG TID
     Dates: start: 20110611
  4. ACETYLSALICYLIC ACID SRT [Concomitant]
     Indication: PORTAL HYPERTENSION
     Dosage: 100 MG, QD
     Dates: start: 20080101
  5. PANTOPRAZOLE SODIUM [Concomitant]
     Indication: GASTROOESOPHAGEAL REFLUX DISEASE
     Dosage: 40 MG, BID
     Dates: start: 20080101, end: 20101201
  6. PANTOPRAZOLE SODIUM [Concomitant]
     Dosage: 40 MG, BID
     Dates: start: 20101203, end: 20110601
  7. FERROUS SULFATE TAB [Concomitant]
     Indication: HYPERCHROMIC ANAEMIA
     Dosage: 80 MG, QD
     Dates: start: 20100501, end: 20101210
  8. ZOLPIDEM TARTRATE [Concomitant]
     Dosage: 5 MG, PRN
     Dates: start: 20101214
  9. RIFAXIMIN [Concomitant]
     Indication: HEPATIC ENCEPHALOPATHY PROPHYLAXIS
     Dosage: 400 MG, BID
     Dates: start: 20101212, end: 20110611
  10. SORAFENIB (RAF KINASE INHIBITOR) [Suspect]
     Indication: HEPATIC NEOPLASM MALIGNANT
     Dosage: 400 MG, BID
     Route: 048
     Dates: start: 20101105, end: 20101201
  11. SORAFENIB (RAF KINASE INHIBITOR) [Suspect]
     Dosage: 200 MG, QD
     Route: 048
     Dates: start: 20101214, end: 20110127
  12. ORNITHINE [Concomitant]
     Dosage: 3 G, TID
     Dates: start: 20101207, end: 20110601
  13. TRAMADOL HYDROCHLORIDE [Concomitant]
     Indication: BACK PAIN
     Dosage: 100 MG, QD
     Dates: start: 20090101, end: 20101210
  14. TRAMAL LONG [Concomitant]
     Indication: CONTUSION
     Dosage: 150 MG, QD
     Dates: start: 20110601, end: 20110607
  15. TIOTROPIUM BROMIDE [Concomitant]
     Indication: CHRONIC OBSTRUCTIVE PULMONARY DISEASE
     Dosage: 1 PUFF(S), QD
     Dates: start: 20080101
  16. TRACLEER [Concomitant]
     Indication: PULMONARY HYPERTENSION
     Dosage: 62.5 MG, BID
     Dates: start: 20090101
  17. ALLOPURINOL [Concomitant]
     Indication: HYPERURICAEMIA
     Dosage: 150 MG, QD
     Dates: start: 20100301, end: 20101210
  18. PANTOPRAZOLE SODIUM [Concomitant]
     Dosage: 40 MG, QD
     Dates: start: 20101202, end: 20101204
  19. ORNITHINE [Concomitant]
     Indication: HEPATIC ENCEPHALOPATHY PROPHYLAXIS
     Dosage: 6 G, TID
     Dates: start: 20080101, end: 20080101
  20. ACETYLSALICYLIC ACID SRT [Concomitant]
     Indication: STENT PLACEMENT
     Dosage: 100 MG, QD
     Dates: start: 20090909
  21. SORAFENIB (RAF KINASE INHIBITOR) [Suspect]
     Dosage: 200 MG, QD
     Route: 048
     Dates: start: 20110218, end: 20110602
  22. NEBIVOLOL HCL [Concomitant]
     Indication: ATRIAL FIBRILLATION
     Dosage: 2.5 MG, QD
     Dates: start: 20090901

REACTIONS (3)
  - HEPATIC ENCEPHALOPATHY [None]
  - COMA HEPATIC [None]
  - LACERATION [None]
